FAERS Safety Report 11280222 (Version 1)
Quarter: 2015Q3

REPORT INFORMATION
  Report Type: Spontaneous
  Country: US (occurrence: US)
  Receive Date: 20150717
  Receipt Date: 20150717
  Transmission Date: 20151125
  Serious: Yes (Other)
  Sender: FDA-Public Use
  Company Number: US-JNJFOC-20131217099

PATIENT
  Age: 62 Year
  Sex: Male

DRUGS (2)
  1. CLADRIBINE. [Suspect]
     Active Substance: CLADRIBINE
     Indication: HAIRY CELL LEUKAEMIA
     Dosage: 2 HOUR INFUSION
     Route: 042
  2. RITUXIMAB [Suspect]
     Active Substance: RITUXIMAB
     Indication: HAIRY CELL LEUKAEMIA
     Dosage: ON DAY 1
     Route: 065

REACTIONS (8)
  - Dizziness [Unknown]
  - Incorrect dose administered [Unknown]
  - Hypoalbuminaemia [Unknown]
  - Lymphopenia [Unknown]
  - Anaemia [Unknown]
  - Cough [Unknown]
  - Oropharyngeal pain [Unknown]
  - Infusion related reaction [Unknown]
